FAERS Safety Report 8555388-7 (Version None)
Quarter: 2012Q3

REPORT INFORMATION
  Report Type: 
  Country: None (occurrence: None)
  Receive Date: 20120731
  Receipt Date: 20120420
  Transmission Date: 20120928
  Serious: No
  Sender: FDA-Public Use
  Company Number: US-ASTRAZENECA-2011SE34750

PATIENT
  Age: 62 Year
  Sex: Female
  Weight: 68 kg

DRUGS (9)
  1. BLOOD PRESSURE PILL [Concomitant]
  2. SEROQUEL [Suspect]
     Indication: ANXIETY
     Route: 048
     Dates: start: 20090101
  3. SYMBICORT [Suspect]
     Indication: EMPHYSEMA
     Dosage: 160/4.5 MCG TWO PUFFS TWICE DAILY
     Route: 055
  4. ALBUTEROL [Concomitant]
     Dosage: PRN
  5. NEXIUM [Suspect]
     Indication: GASTRIC ULCER
     Route: 048
  6. NEXIUM [Suspect]
     Indication: GASTROOESOPHAGEAL REFLUX DISEASE
     Route: 048
  7. XANAX [Concomitant]
  8. SYMBICORT [Suspect]
     Indication: BRONCHITIS
     Dosage: 160/4.5 MCG TWO PUFFS TWICE DAILY
     Route: 055
  9. SEROQUEL [Suspect]
     Indication: DEPRESSION
     Route: 048
     Dates: start: 20090101

REACTIONS (12)
  - PNEUMONIA [None]
  - INSOMNIA [None]
  - DECREASED APPETITE [None]
  - WITHDRAWAL SYNDROME [None]
  - ASTHENIA [None]
  - FALL [None]
  - FOOT FRACTURE [None]
  - APHAGIA [None]
  - NERVOUSNESS [None]
  - INTENTIONAL DRUG MISUSE [None]
  - MALAISE [None]
  - VOMITING [None]
